FAERS Safety Report 12962141 (Version 1)
Quarter: 2016Q4

REPORT INFORMATION
  Report Type: Spontaneous
  Country: US (occurrence: US)
  Receive Date: 20161121
  Receipt Date: 20161121
  Transmission Date: 20170207
  Serious: Yes (Hospitalization)
  Sender: FDA-Public Use
  Company Number: US-B.I. PHARMACEUTICALS,INC./RIDGEFIELD-2016-BI-077814

PATIENT
  Age: 74 Year
  Sex: Female

DRUGS (8)
  1. FLONASE [Concomitant]
     Active Substance: FLUTICASONE PROPIONATE
     Indication: HYPERSENSITIVITY
     Dosage: UNIT DOSE AND DAILY DOSE: 1 SPRAY INTO EACH NOSTRIL DAILY.
     Route: 045
     Dates: start: 2015
  2. CLONAZEPAM. [Concomitant]
     Active Substance: CLONAZEPAM
     Indication: NERVOUS SYSTEM DISORDER
     Dosage: DAILY DOSE: 1 TABLET DAILY AS NEEDED.
     Route: 048
     Dates: start: 2012
  3. METOPROLOL. [Concomitant]
     Active Substance: METOPROLOL
     Indication: HYPERTENSION
     Route: 048
     Dates: start: 2000
  4. CALCIUM [Concomitant]
     Active Substance: CALCIUM
     Indication: MINERAL SUPPLEMENTATION
     Route: 048
     Dates: start: 2000
  5. OXYBUTYNIN [Concomitant]
     Active Substance: OXYBUTYNIN
     Indication: BLADDER DISORDER
     Route: 048
     Dates: start: 2000
  6. ADVAIR HFA [Concomitant]
     Active Substance: FLUTICASONE PROPIONATE\SALMETEROL XINAFOATE
     Indication: HYPERSENSITIVITY
     Dosage: UNIT DOSE AND DAILY DOSE; 230 MCG/ 21 MCG, FORM STRENGTH: 230 MCG/ 21 MCG.
     Route: 055
     Dates: start: 2000
  7. PRADAXA [Suspect]
     Active Substance: DABIGATRAN ETEXILATE MESYLATE
     Indication: ATRIAL FIBRILLATION
     Route: 048
     Dates: start: 201404
  8. LOVASTATIN. [Concomitant]
     Active Substance: LOVASTATIN
     Indication: BLOOD CHOLESTEROL INCREASED
     Route: 048
     Dates: start: 2000

REACTIONS (5)
  - Joint injury [Recovered/Resolved]
  - Pain in extremity [Not Recovered/Not Resolved]
  - Road traffic accident [Recovered/Resolved]
  - Paraesthesia [Not Recovered/Not Resolved]
  - Arthritis infective [Recovered/Resolved]

NARRATIVE: CASE EVENT DATE: 20160326
